FAERS Safety Report 7853189-6 (Version None)
Quarter: 2011Q4

REPORT INFORMATION
  Report Type: 
  Country: None (occurrence: None)
  Receive Date: 20111026
  Receipt Date: 20111014
  Transmission Date: 20120403
  Serious: Yes (Life-Threatening, Hospitalization, Disabling)
  Sender: FDA-Public Use
  Company Number: PT-MERCK-1110PRT00002

PATIENT
  Age: 70 Year
  Sex: Female

DRUGS (3)
  1. ZOCOR [Suspect]
     Route: 065
  2. KETOCONAZOLE [Suspect]
     Route: 065
  3. CYCLOSPORINE [Suspect]
     Route: 065

REACTIONS (11)
  - ASTHENIA [None]
  - CONVULSION [None]
  - MALAISE [None]
  - RHABDOMYOLYSIS [None]
  - TREMOR [None]
  - RENAL FAILURE ACUTE [None]
  - CONFUSIONAL STATE [None]
  - LIVER DISORDER [None]
  - MYALGIA [None]
  - HEADACHE [None]
  - DRUG INTERACTION [None]
